FAERS Safety Report 24676910 (Version 1)
Quarter: 2024Q4

REPORT INFORMATION
  Report Type: Spontaneous
  Country: US (occurrence: US)
  Receive Date: 20241128
  Receipt Date: 20241128
  Transmission Date: 20250115
  Serious: Yes (Hospitalization, Other)
  Sender: NOVITIUM PHARMA
  Company Number: US-NOVITIUMPHARMA-2024USNVP02656

PATIENT
  Age: 63 Year
  Sex: Male

DRUGS (8)
  1. PREDNISONE [Suspect]
     Active Substance: PREDNISONE
     Indication: Immunosuppression
  2. RIFABUTIN [Suspect]
     Active Substance: RIFABUTIN
     Indication: Anti-infective therapy
  3. BASILIXIMAB [Concomitant]
     Active Substance: BASILIXIMAB
  4. MYCOPHENOLATE MOFETIL [Concomitant]
     Active Substance: MYCOPHENOLATE MOFETIL
  5. BELATACEPT [Concomitant]
     Active Substance: BELATACEPT
     Route: 042
  6. EVEROLIMUS [Concomitant]
     Active Substance: EVEROLIMUS
     Indication: Immunosuppression
  7. TACROLIMUS [Concomitant]
     Active Substance: TACROLIMUS
     Indication: Immunosuppression
  8. TACROLIMUS [Concomitant]
     Active Substance: TACROLIMUS

REACTIONS (3)
  - Mycobacterium haemophilum infection [Unknown]
  - Respiratory syncytial virus infection [Unknown]
  - Drug interaction [Unknown]
